FAERS Safety Report 7250314-5 (Version None)
Quarter: 2011Q1

REPORT INFORMATION
  Report Type: 
  Country: None (occurrence: None)
  Receive Date: 20110128
  Receipt Date: 20110126
  Transmission Date: 20110831
  Serious: Yes (Other)
  Sender: FDA-Public Use
  Company Number: IT-SANOFI-AVENTIS-2011SA004944

PATIENT
  Age: 80 Year
  Sex: Male

DRUGS (5)
  1. MULTAQ [Suspect]
     Indication: ATRIAL FIBRILLATION
     Route: 048
     Dates: start: 20110101, end: 20110101
  2. ISOPTIN [Concomitant]
     Indication: ATRIAL FIBRILLATION
     Route: 048
     Dates: start: 20101201, end: 20110101
  3. VALSARTAN [Concomitant]
     Indication: HYPERTENSION
     Route: 048
  4. ISOPTIN [Concomitant]
     Route: 048
     Dates: start: 20110101
  5. CARVEDILOL [Suspect]
     Indication: HYPERTENSION
     Route: 048
     Dates: end: 20110101

REACTIONS (2)
  - SYNCOPE [None]
  - PRESYNCOPE [None]
